FAERS Safety Report 4680573-4 (Version None)
Quarter: 2005Q2

REPORT INFORMATION
  Report Type: 
  Country: None (occurrence: None)
  Receive Date: 20050531
  Receipt Date: 20050304
  Transmission Date: 20051028
  Serious: No
  Sender: FDA-Public Use
  Company Number: WAES 0412USA00728

PATIENT
  Age: 66 Year
  Sex: Male
  Weight: 56.6996 kg

DRUGS (1)
  1. ZETIA [Suspect]
     Indication: LIPIDS INCREASED
     Dosage: 10MG/DAILY/PO
     Route: 048
     Dates: end: 20041201

REACTIONS (2)
  - ALOPECIA [None]
  - BURNING SENSATION [None]
